FAERS Safety Report 6938325-8 (Version None)
Quarter: 2010Q3

REPORT INFORMATION
  Report Type: 
  Country: None (occurrence: None)
  Receive Date: 20100824
  Receipt Date: 20100812
  Transmission Date: 20110219
  Serious: Yes (Other)
  Sender: FDA-Public Use
  Company Number: DK-PFIZER INC-2010093646

PATIENT
  Age: 46 Year
  Sex: Female
  Weight: 74 kg

DRUGS (2)
  1. SILDENAFIL CITRATE [Suspect]
     Dosage: 50 MG, 3X/DAY
     Dates: start: 20060601
  2. THELIN [Concomitant]
     Dosage: 100 MG, UNK
     Dates: start: 20060601

REACTIONS (2)
  - CELLULITIS [None]
  - VARICOSE VEIN [None]
